FAERS Safety Report 10200011 (Version 2)
Quarter: 2014Q2

REPORT INFORMATION
  Report Type: Spontaneous
  Country: US (occurrence: US)
  Receive Date: 20140527
  Receipt Date: 20140527
  Transmission Date: 20141212
  Serious: Yes (Other)
  Sender: FDA-Public Use
  Company Number: US-GILEAD-2014-0102607

PATIENT
  Age: 58 Year
  Sex: Female
  Weight: 71.66 kg

DRUGS (8)
  1. SOVALDI [Suspect]
     Indication: CHRONIC HEPATITIS C
     Dosage: UNK
     Route: 065
     Dates: start: 20131226, end: 20140429
  2. RIBAPAK [Concomitant]
     Indication: CHRONIC HEPATITIS C
     Dosage: UNK
     Dates: start: 20131226, end: 20140429
  3. FUROSEMIDE [Concomitant]
     Indication: OEDEMA
     Dosage: UNK
     Dates: start: 19000101, end: 20140429
  4. MAGNESIUM [Concomitant]
     Indication: MUSCLE SPASMS
     Dosage: UNK
     Dates: end: 20140429
  5. NADOLOL [Concomitant]
     Indication: VARICES OESOPHAGEAL
     Dosage: UNK
     Dates: end: 20140429
  6. OMEPRAZOLE [Concomitant]
     Indication: GASTROOESOPHAGEAL REFLUX DISEASE
     Dosage: UNK
     Dates: end: 20140429
  7. SPIRONOLACTONE [Concomitant]
     Indication: OEDEMA
     Dosage: UNK
     Dates: end: 20140429
  8. ZINC [Concomitant]
     Indication: HEPATIC CIRRHOSIS
     Dosage: UNK
     Dates: end: 20140429

REACTIONS (1)
  - Hepatitis C [Not Recovered/Not Resolved]
